FAERS Safety Report 5323349-7 (Version None)
Quarter: 2007Q2

REPORT INFORMATION
  Report Type: 
  Country: None (occurrence: None)
  Receive Date: 20070514
  Receipt Date: 20070503
  Transmission Date: 20071010
  Serious: Yes (Other)
  Sender: FDA-Public Use
  Company Number: PHEH2007US03862

PATIENT
  Age: 72 Year
  Sex: Female
  Weight: 60.77 kg

DRUGS (7)
  1. ZELNORM [Suspect]
     Indication: IRRITABLE BOWEL SYNDROME
     Dosage: 6 MG, BID
     Route: 048
     Dates: start: 20040302, end: 20070402
  2. ASPIRIN [Concomitant]
  3. SOLATOL [Concomitant]
     Indication: HYPERTENSION
     Dosage: 80 MG, BID
     Route: 048
  4. BONIVA [Concomitant]
     Dosage: 150 MG EVERY MONTH
  5. CALTRATE [Concomitant]
     Dosage: 600 MG, QD
     Route: 048
  6. TEMAZEPAM [Concomitant]
     Dosage: 15 MG 2-3 TIMES PER WEEK
     Route: 048
  7. XANAX [Concomitant]
     Dosage: 0.25 MG, QD
     Route: 048

REACTIONS (5)
  - CARDIAC FLUTTER [None]
  - DYSPNOEA [None]
  - EXTRASYSTOLES [None]
  - HYPOAESTHESIA [None]
  - PULMONARY CONGESTION [None]
